FAERS Safety Report 8457864-4 (Version None)
Quarter: 2012Q2

REPORT INFORMATION
  Report Type: 
  Country: None (occurrence: None)
  Receive Date: 20120323
  Receipt Date: 20110927
  Transmission Date: 20120825
  Serious: Yes (Hospitalization)
  Sender: FDA-Public Use
  Company Number: 163-21880-11081632

PATIENT
  Age: 86 Year
  Sex: Female

DRUGS (4)
  1. ASPIRIN [Concomitant]
  2. PREDNISONE TAB [Concomitant]
  3. REVLIMID [Suspect]
     Indication: MYELODYSPLASTIC SYNDROME
     Dosage: 10 MG, 1 IN 1 D, PO; 5 MG, 1 IN 1 , PO
     Route: 048
     Dates: start: 20110322, end: 20110721
  4. REVLIMID [Suspect]
     Indication: MYELODYSPLASTIC SYNDROME
     Dosage: 10 MG, 1 IN 1 D, PO; 5 MG, 1 IN 1 , PO
     Route: 048
     Dates: start: 20110828

REACTIONS (3)
  - PANCYTOPENIA [None]
  - FEBRILE NEUTROPENIA [None]
  - PSEUDOMONAL BACTERAEMIA [None]
